FAERS Safety Report 18324106 (Version 1)
Quarter: 2020Q3

REPORT INFORMATION
  Report Type: Report from Study
  Country: GB (occurrence: GB)
  Receive Date: 20200929
  Receipt Date: 20200929
  Transmission Date: 20201103
  Serious: Yes (Other)
  Sender: FDA-Public Use
  Company Number: GB-AMGEN-GBRSP2020137545

PATIENT
  Age: 79 Year
  Sex: Female

DRUGS (1)
  1. REPATHA [Suspect]
     Active Substance: EVOLOCUMAB
     Indication: TYPE IIA HYPERLIPIDAEMIA
     Dosage: 140 MILLIGRAM, Q2WK
     Route: 058
     Dates: end: 202009

REACTIONS (9)
  - Pain in extremity [Not Recovered/Not Resolved]
  - Cough [Unknown]
  - Epistaxis [Unknown]
  - Choking [Unknown]
  - Sleep disorder due to a general medical condition [Unknown]
  - Increased upper airway secretion [Unknown]
  - Catarrh [Unknown]
  - Sinusitis [Unknown]
  - Oral pain [Unknown]

NARRATIVE: CASE EVENT DATE: 2020
